FAERS Safety Report 7475864-8 (Version None)
Quarter: 2011Q2

REPORT INFORMATION
  Report Type: 
  Country: None (occurrence: None)
  Receive Date: 20110504
  Receipt Date: 20110420
  Transmission Date: 20111010
  Serious: Yes (Other)
  Sender: FDA-Public Use
  Company Number: 030855

PATIENT
  Sex: Female

DRUGS (5)
  1. ARICEPT [Concomitant]
  2. TAGAMET /0397401/ [Concomitant]
  3. ZETIA [Concomitant]
  4. XYZAL [Suspect]
     Indication: RHINITIS ALLERGIC
     Dosage: 20 MG QD ORAL
     Route: 048
     Dates: start: 20110402, end: 20110401
  5. RADEN [Concomitant]

REACTIONS (4)
  - MALAISE [None]
  - PRURITUS [None]
  - RASH [None]
  - SOMNOLENCE [None]
